FAERS Safety Report 7513942-5 (Version None)
Quarter: 2011Q2

REPORT INFORMATION
  Report Type: 
  Country: None (occurrence: None)
  Receive Date: 20110531
  Receipt Date: 20110525
  Transmission Date: 20111010
  Serious: Yes (Other)
  Sender: FDA-Public Use
  Company Number: FR-B.I. PHARMACEUTICALS,INC./RIDGEFIELD-2011-FF-00525FF

PATIENT
  Sex: Male

DRUGS (3)
  1. XYREM [Suspect]
     Dosage: 6 G
     Route: 048
     Dates: start: 20101102
  2. PRAMIPEXOLE DIHYCHLLORIDE [Suspect]
     Dosage: 0.54 MG
     Route: 048
  3. XYREM [Suspect]
     Indication: CATAPLEXY
     Dosage: 4.5 G
     Route: 048
     Dates: start: 20090818, end: 20101102

REACTIONS (1)
  - BLADDER CANCER [None]
